FAERS Safety Report 5337305-6 (Version None)
Quarter: 2007Q2

REPORT INFORMATION
  Report Type: 
  Country: None (occurrence: None)
  Receive Date: 20070529
  Receipt Date: 20070517
  Transmission Date: 20071010
  Serious: Yes (Other)
  Sender: FDA-Public Use
  Company Number: US-PFIZER INC-2007040417

PATIENT
  Sex: Male
  Weight: 102.1 kg

DRUGS (3)
  1. LIPITOR [Suspect]
  2. ECOTRIN [Concomitant]
  3. PLAVIX [Concomitant]

REACTIONS (4)
  - MUSCULOSKELETAL PAIN [None]
  - NERVE COMPRESSION [None]
  - PARAESTHESIA [None]
  - STENT PLACEMENT [None]
